FAERS Safety Report 8017020-0 (Version None)
Quarter: 2012Q1

REPORT INFORMATION
  Report Type: 
  Country: None (occurrence: None)
  Receive Date: 20120102
  Receipt Date: 20111228
  Transmission Date: 20120608
  Serious: Yes (Hospitalization)
  Sender: FDA-Public Use
  Company Number: PHEH2011US012697

PATIENT
  Age: 10 Year
  Sex: Female

DRUGS (2)
  1. PULMOZYME [Concomitant]
     Dosage: UNK
  2. TOBI [Suspect]
     Dosage: 300 MG, BID
     Dates: start: 20090803

REACTIONS (1)
  - UPPER RESPIRATORY TRACT INFECTION [None]
